FAERS Safety Report 5498336-9 (Version None)
Quarter: 2007Q4

REPORT INFORMATION
  Report Type: 
  Country: None (occurrence: None)
  Receive Date: 20071025
  Receipt Date: 20070502
  Transmission Date: 20080405
  Serious: No
  Sender: FDA-Public Use
  Company Number: A0649715A

PATIENT
  Age: 77 Year
  Sex: Male

DRUGS (8)
  1. ADVAIR DISKUS 100/50 [Suspect]
     Indication: EMPHYSEMA
     Route: 055
     Dates: start: 20050101
  2. FLOMAX [Concomitant]
  3. PREDNISONE [Concomitant]
  4. ATIVAN [Concomitant]
  5. SPIRIVA [Concomitant]
  6. VITAMINS [Concomitant]
  7. SERTRALINE [Concomitant]
  8. ANTIBIOTICS [Concomitant]

REACTIONS (3)
  - BRONCHITIS [None]
  - PRURITUS [None]
  - TREMOR [None]
